FAERS Safety Report 4443940-X (Version None)
Quarter: 2004Q3

REPORT INFORMATION
  Report Type: 
  Country: None (occurrence: None)
  Receive Date: 20040729
  Receipt Date: 20030801
  Transmission Date: 20050211
  Serious: Yes (Hospitalization)
  Sender: FDA-Public Use
  Company Number: NSADSS2002001971

PATIENT
  Age: 7 Year
  Sex: Male

DRUGS (7)
  1. RISPERDAL [Suspect]
     Indication: BIPOLAR DISORDER
     Dosage: SEE IMAGE
     Route: 048
     Dates: start: 20011101
  2. RISPERDAL [Suspect]
     Indication: PSYCHOTIC DISORDER
     Dosage: SEE IMAGE
     Route: 048
     Dates: start: 20011101
  3. TEGRETOL [Concomitant]
  4. ALBUTEROL [Concomitant]
  5. PAXIL [Concomitant]
  6. TOPAMAX [Concomitant]
  7. MESTINON [Concomitant]

REACTIONS (4)
  - AGGRESSION [None]
  - AGITATION [None]
  - DISTURBANCE IN ATTENTION [None]
  - SEDATION [None]
